FAERS Safety Report 5295514-9 (Version None)
Quarter: 2007Q2

REPORT INFORMATION
  Report Type: 
  Country: None (occurrence: None)
  Receive Date: 20070406
  Receipt Date: 20070322
  Transmission Date: 20071010
  Serious: No
  Sender: FDA-Public Use
  Company Number: T200700348

PATIENT
  Sex: Male

DRUGS (1)
  1. HEXABRIX [Suspect]
     Indication: CARDIOVASCULAR EVALUATION
     Dosage: 100 ML, SINGLE, UNK
     Dates: start: 20070228, end: 20070228

REACTIONS (1)
  - HYPERSENSITIVITY [None]
